FAERS Safety Report 9804554 (Version 3)
Quarter: 2014Q1

REPORT INFORMATION
  Report Type: Report from Study
  Country: TW (occurrence: TW)
  Receive Date: 20140108
  Receipt Date: 20140303
  Transmission Date: 20141002
  Serious: Yes (Hospitalization, Other)
  Sender: FDA-Public Use
  Company Number: TW-ABBVIE-14P-153-1185579-00

PATIENT
  Age: 50 Year
  Sex: Male
  Weight: 51 kg

DRUGS (4)
  1. HUMIRA [Suspect]
     Indication: CROHN^S DISEASE
     Route: 058
     Dates: start: 20120213, end: 20131223
  2. ULTRACET [Concomitant]
     Indication: PAIN
     Route: 048
     Dates: start: 20131228
  3. ZOLPIDEM [Concomitant]
     Indication: INSOMNIA
     Dosage: BEFORE BED
     Route: 048
     Dates: start: 20131228
  4. ESOMEPRAZOLE [Concomitant]
     Indication: PEPTIC ULCER
     Route: 048
     Dates: start: 20131230

REACTIONS (3)
  - Unevaluable event [Recovered/Resolved]
  - Duodenal operation [Recovered/Resolved]
  - Abdominal pain [Recovered/Resolved]
